FAERS Safety Report 16728715 (Version 1)
Quarter: 2019Q3

REPORT INFORMATION
  Report Type: Report from Study
  Country: US (occurrence: US)
  Receive Date: 20190822
  Receipt Date: 20190822
  Transmission Date: 20191005
  Serious: Yes (Hospitalization)
  Sender: FDA-Public Use
  Company Number: US-EISAI MEDICAL RESEARCH-EC-2019-060409

PATIENT
  Age: 60 Year
  Sex: Female
  Weight: 58 kg

DRUGS (14)
  1. HUMALOG [Concomitant]
     Active Substance: INSULIN LISPRO
  2. LENVIMA [Suspect]
     Active Substance: LENVATINIB
     Indication: RENAL CELL CARCINOMA
     Route: 048
     Dates: start: 20190731, end: 201908
  3. GLUCAGON. [Concomitant]
     Active Substance: GLUCAGON
  4. ZYRTEC [Concomitant]
     Active Substance: CETIRIZINE HYDROCHLORIDE
  5. SINGULAIR [Concomitant]
     Active Substance: MONTELUKAST SODIUM
  6. DILAUDID [Concomitant]
     Active Substance: HYDROMORPHONE HYDROCHLORIDE
  7. ZOFRAN [Concomitant]
     Active Substance: ONDANSETRON HYDROCHLORIDE
  8. FLONASE [Concomitant]
     Active Substance: FLUTICASONE PROPIONATE
  9. LENVIMA [Suspect]
     Active Substance: LENVATINIB
     Route: 048
     Dates: start: 20190816
  10. TYLENOL [Concomitant]
     Active Substance: ACETAMINOPHEN
  11. AFINITOR [Concomitant]
     Active Substance: EVEROLIMUS
  12. LEVOTHYROXINE. [Concomitant]
     Active Substance: LEVOTHYROXINE
  13. ZANTAC [Concomitant]
     Active Substance: RANITIDINE HYDROCHLORIDE
  14. IRBESARTAN. [Concomitant]
     Active Substance: IRBESARTAN

REACTIONS (4)
  - Blood pressure increased [Unknown]
  - Chest pain [Unknown]
  - Blood glucose increased [Unknown]
  - Dyspnoea [Unknown]

NARRATIVE: CASE EVENT DATE: 201908
